FAERS Safety Report 9099540 (Version 1)
Quarter: 2013Q1

REPORT INFORMATION
  Report Type: Spontaneous
  Country: AE (occurrence: AE)
  Receive Date: 20130214
  Receipt Date: 20130214
  Transmission Date: 20140127
  Serious: Yes (Other)
  Sender: FDA-Public Use
  Company Number: AE-ROCHE-1189977

PATIENT
  Age: 72 Year
  Sex: Male

DRUGS (5)
  1. ALTEPLASE [Suspect]
     Indication: DEEP VEIN THROMBOSIS
     Route: 065
  2. ALTEPLASE [Suspect]
     Indication: PULMONARY EMBOLISM
  3. ALTEPLASE [Suspect]
     Indication: ACUTE MYOCARDIAL INFARCTION
  4. ALTEPLASE [Suspect]
     Indication: ISCHAEMIC STROKE
  5. HEPARIN [Suspect]
     Indication: PRODUCT USED FOR UNKNOWN INDICATION
     Route: 065

REACTIONS (3)
  - Haemorrhagic transformation stroke [Recovered/Resolved with Sequelae]
  - Upper gastrointestinal haemorrhage [Recovered/Resolved]
  - Haemoglobin decreased [Recovered/Resolved with Sequelae]
